FAERS Safety Report 7156832-2 (Version None)
Quarter: 2010Q4

REPORT INFORMATION
  Report Type: 
  Country: None (occurrence: None)
  Receive Date: 20101214
  Receipt Date: 20101130
  Transmission Date: 20110411
  Serious: Yes (Other)
  Sender: FDA-Public Use
  Company Number: PHHY2010FR82283

PATIENT
  Age: 80 Year
  Sex: Female

DRUGS (3)
  1. TAREG [Suspect]
     Indication: HYPERTENSION
     Dosage: 80 MG DAILY
     Dates: start: 20100701
  2. LOGIRENE [Concomitant]
     Dosage: 0.5 DF, QD
     Dates: start: 20100701
  3. TOPAAL [Concomitant]
     Indication: ABDOMINAL PAIN UPPER

REACTIONS (7)
  - BACK PAIN [None]
  - MUSCULOSKELETAL PAIN [None]
  - NAUSEA [None]
  - PAIN IN EXTREMITY [None]
  - SCIATICA [None]
  - TINNITUS [None]
  - VOMITING [None]
